FAERS Safety Report 8216754-2 (Version None)
Quarter: 2012Q1

REPORT INFORMATION
  Report Type: 
  Country: None (occurrence: None)
  Receive Date: 20120316
  Receipt Date: 20120307
  Transmission Date: 20120608
  Serious: Yes (Hospitalization, Other)
  Sender: FDA-Public Use
  Company Number: RO-ROCHE-1046734

PATIENT
  Age: 43 Year
  Sex: Female

DRUGS (5)
  1. VINCRISTINE [Suspect]
     Indication: NON-HODGKIN'S LYMPHOMA METASTATIC
     Route: 065
  2. RITUXIMAB [Suspect]
     Indication: NON-HODGKIN'S LYMPHOMA METASTATIC
  3. DOXORUBICIN HCL [Suspect]
     Indication: NON-HODGKIN'S LYMPHOMA METASTATIC
     Route: 065
  4. CYCLOPHOSPHAMIDE [Suspect]
     Indication: NON-HODGKIN'S LYMPHOMA METASTATIC
     Route: 065
  5. PREDNISONE [Suspect]
     Indication: NON-HODGKIN'S LYMPHOMA METASTATIC
     Route: 065

REACTIONS (4)
  - HEPATIC FAILURE [None]
  - THROMBOCYTOPENIA [None]
  - BORRELIA INFECTION [None]
  - ANAEMIA [None]
